FAERS Safety Report 14415011 (Version 1)
Quarter: 2018Q1

REPORT INFORMATION
  Report Type: Spontaneous
  Country: US (occurrence: US)
  Receive Date: 20180118
  Receipt Date: 20180118
  Transmission Date: 20180509
  Serious: Yes (Hospitalization)
  Sender: FDA-Public Use
  Company Number: None

PATIENT
  Age: 69 Year
  Sex: Female
  Weight: 74.4 kg

DRUGS (2)
  1. CARBOPLATIN. [Suspect]
     Active Substance: CARBOPLATIN
     Dates: end: 20171228
  2. GEMCITABINE HYDROCHLORIDE. [Suspect]
     Active Substance: GEMCITABINE HYDROCHLORIDE
     Dates: end: 20171228

REACTIONS (7)
  - Seizure [None]
  - Condition aggravated [None]
  - Adult failure to thrive [None]
  - Asthenia [None]
  - Hospice care [None]
  - Anxiety [None]
  - Quality of life decreased [None]

NARRATIVE: CASE EVENT DATE: 20180104
